FAERS Safety Report 9463769 (Version 1)
Quarter: 2013Q3

REPORT INFORMATION
  Report Type: Spontaneous
  Country: CA (occurrence: CA)
  Receive Date: 20130819
  Receipt Date: 20130819
  Transmission Date: 20140515
  Serious: Yes (Hospitalization)
  Sender: FDA-Public Use
  Company Number: CA-ROCHE-1261989

PATIENT
  Age: 68 Year
  Sex: Male
  Weight: 106 kg

DRUGS (14)
  1. NAPROXEN [Suspect]
     Indication: PRODUCT USED FOR UNKNOWN INDICATION
     Route: 048
  2. ALDACTONE (CANADA) [Suspect]
     Indication: PRODUCT USED FOR UNKNOWN INDICATION
     Route: 048
  3. CHAMPIX [Suspect]
     Indication: PRODUCT USED FOR UNKNOWN INDICATION
     Dosage: THERAPY DURATION: 44 DAYS
     Route: 048
  4. FLUOXETINE [Concomitant]
     Route: 048
  5. IMODIUM [Concomitant]
     Route: 048
  6. IMOVANE [Concomitant]
     Route: 048
  7. NITRO-DUR [Concomitant]
     Route: 062
  8. NOVOLIN GE NPH [Concomitant]
     Dosage: FORM OF ADMIN. TEXT: 100U/L SUSPENSION
     Route: 058
  9. NOVORAPID [Concomitant]
     Route: 058
  10. RAMIPRIL [Concomitant]
     Route: 048
  11. REMERON [Concomitant]
     Route: 048
  12. WARFARIN [Concomitant]
     Route: 048
  13. ZANTAC [Concomitant]
     Route: 048
  14. DIGOXIN [Concomitant]
     Route: 048

REACTIONS (7)
  - Blood creatinine increased [Recovered/Resolved]
  - Bundle branch block [Recovered/Resolved]
  - Chest pain [Recovered/Resolved]
  - Haemoglobin decreased [Recovered/Resolved]
  - Hyperkalaemia [Recovered/Resolved]
  - International normalised ratio increased [Recovered/Resolved]
  - White blood cell count increased [Recovered/Resolved]
